FAERS Safety Report 10371426 (Version 4)
Quarter: 2016Q1

REPORT INFORMATION
  Report Type: Report from Study
  Country: US (occurrence: US)
  Receive Date: 20140808
  Receipt Date: 20160203
  Transmission Date: 20160525
  Serious: Yes (Death, Other)
  Sender: FDA-Public Use
  Company Number: US-SA-2014SA104593

PATIENT
  Age: 63 Year
  Sex: Male
  Weight: 99.7 kg

DRUGS (3)
  1. AUBAGIO [Suspect]
     Active Substance: TERIFLUNOMIDE
     Indication: MULTIPLE SCLEROSIS
     Route: 048
  2. AUBAGIO [Suspect]
     Active Substance: TERIFLUNOMIDE
     Indication: MULTIPLE SCLEROSIS
     Route: 048
     Dates: start: 20130801
  3. AUBAGIO [Suspect]
     Active Substance: TERIFLUNOMIDE
     Indication: MULTIPLE SCLEROSIS
     Route: 048
     Dates: start: 20131001

REACTIONS (2)
  - Urinary retention [Unknown]
  - Death [Fatal]
